FAERS Safety Report 5300488-8 (Version None)
Quarter: 2007Q2

REPORT INFORMATION
  Report Type: 
  Country: None (occurrence: None)
  Receive Date: 20070418
  Receipt Date: 20070405
  Transmission Date: 20071010
  Serious: Yes (Hospitalization)
  Sender: FDA-Public Use
  Company Number: PHEH2007US04223

PATIENT
  Age: 65 Year
  Sex: Female

DRUGS (8)
  1. ZELNORM [Suspect]
     Indication: IRRITABLE BOWEL SYNDROME
     Dosage: 6 MG, BID
     Dates: end: 20070405
  2. TOPAMAX [Concomitant]
  3. ATENOLOL [Concomitant]
     Indication: HYPERTENSION
  4. ACIPHEX [Concomitant]
  5. HYDROCHLOROTHIAZIDE [Concomitant]
  6. VITAMINS [Concomitant]
  7. LIBRAX [Concomitant]
  8. VYTORIN [Concomitant]

REACTIONS (1)
  - COLITIS ISCHAEMIC [None]
